FAERS Safety Report 24572848 (Version 1)
Quarter: 2024Q4

REPORT INFORMATION
  Report Type: Spontaneous
  Country: US (occurrence: None)
  Receive Date: 20241101
  Receipt Date: 20241101
  Transmission Date: 20250115
  Serious: Yes (Disabling)
  Sender: Public
  Company Number: None

PATIENT
  Age: 39 Year
  Sex: Male
  Weight: 76.5 kg

DRUGS (9)
  1. LEVOFLOXACIN [Suspect]
     Active Substance: LEVOFLOXACIN
     Indication: Brucellosis
     Dosage: OTHER QUANTITY : 1 TABLET(S);?
     Route: 048
     Dates: start: 20241011, end: 20241023
  2. Cryptolepis, [Concomitant]
  3. VITAMIN C [Concomitant]
     Active Substance: ASCORBIC ACID
  4. CURCUMIN [Concomitant]
     Active Substance: CURCUMIN
  5. BERBERINE [Concomitant]
     Active Substance: BERBERINE
  6. OREGANO LEAF OIL [Concomitant]
     Active Substance: OREGANO LEAF OIL
  7. FAMOTIDINE [Concomitant]
     Active Substance: FAMOTIDINE
  8. VITAMIN D [Concomitant]
     Active Substance: VITAMIN D NOS
  9. boluoke [Concomitant]

REACTIONS (6)
  - Muscle tightness [None]
  - Peripheral swelling [None]
  - Pain in extremity [None]
  - Tendon pain [None]
  - Back pain [None]
  - Gait inability [None]

NARRATIVE: CASE EVENT DATE: 20241018
